FAERS Safety Report 21978235 (Version 2)
Quarter: 2023Q1

REPORT INFORMATION
  Report Type: Spontaneous
  Country: CH (occurrence: CH)
  Receive Date: 20230210
  Receipt Date: 20230215
  Transmission Date: 20230418
  Serious: Yes (Hospitalization, Other)
  Sender: FDA-Public Use
  Company Number: None

PATIENT
  Age: 69 Year
  Sex: Male

DRUGS (4)
  1. CLOZAPINE [Interacting]
     Active Substance: CLOZAPINE
     Indication: Product used for unknown indication
     Dosage: 12.5 MILLIGRAM
     Route: 048
     Dates: start: 20220616, end: 20220616
  2. CLOZAPINE [Interacting]
     Active Substance: CLOZAPINE
     Dosage: 12.5 MILLIGRAM
     Route: 065
     Dates: start: 20220621
  3. ZOLPIDEM TARTRATE [Interacting]
     Active Substance: ZOLPIDEM TARTRATE
     Indication: Insomnia
     Dosage: 50 MILLIGRAM, PM (50 MG (5 TABLETS))
     Route: 048
     Dates: end: 20220616
  4. ZOLPIDEM TARTRATE [Interacting]
     Active Substance: ZOLPIDEM TARTRATE
     Dosage: 10 MILLIGRAM, PM
     Route: 065

REACTIONS (3)
  - Disturbance in attention [Recovered/Resolved]
  - Drug interaction [Recovered/Resolved]
  - Intentional overdose [Recovered/Resolved]

NARRATIVE: CASE EVENT DATE: 20220616
